FAERS Safety Report 13449869 (Version 2)
Quarter: 2017Q2

REPORT INFORMATION
  Report Type: Spontaneous
  Country: US (occurrence: US)
  Receive Date: 20170417
  Receipt Date: 20170519
  Transmission Date: 20170830
  Serious: No
  Sender: FDA-Public Use
  Company Number: US-BION-20160167

PATIENT
  Age: 38 Year
  Sex: Male
  Weight: 95.25 kg

DRUGS (2)
  1. ALEVE [Suspect]
     Active Substance: NAPROXEN SODIUM
     Indication: HEADACHE
     Dosage: 1 DOSAGE FORM
     Route: 048
  2. MOTRIN IB LIQUID GELS [Concomitant]
     Indication: PAIN
     Route: 048

REACTIONS (1)
  - Expired product administered [Unknown]
